FAERS Safety Report 15642783 (Version 2)
Quarter: 2018Q4

REPORT INFORMATION
  Report Type: Spontaneous
  Country: IT (occurrence: IT)
  Receive Date: 20181121
  Receipt Date: 20181123
  Transmission Date: 20190205
  Serious: Yes (Hospitalization)
  Sender: FDA-Public Use
  Company Number: IT-ROCHE-2217665

PATIENT
  Age: 41 Year
  Sex: Female
  Weight: 50 kg

DRUGS (1)
  1. ALECENSA [Suspect]
     Active Substance: ALECTINIB HYDROCHLORIDE
     Indication: NON-SMALL CELL LUNG CANCER
     Route: 048
     Dates: start: 20180608, end: 20181114

REACTIONS (2)
  - Chromaturia [Not Recovered/Not Resolved]
  - Ocular icterus [Not Recovered/Not Resolved]

NARRATIVE: CASE EVENT DATE: 20181114
